FAERS Safety Report 11018459 (Version 2)
Quarter: 2015Q2

REPORT INFORMATION
  Report Type: Spontaneous
  Country: US (occurrence: US)
  Receive Date: 20150412
  Receipt Date: 20150524
  Transmission Date: 20150821
  Serious: Yes (Other)
  Sender: FDA-Public Use
  Company Number: US-JNJFOC-20130608798

PATIENT

DRUGS (4)
  1. CYCLOPHOSPHAMIDE. [Suspect]
     Active Substance: CYCLOPHOSPHAMIDE
     Indication: HER-2 POSITIVE BREAST CANCER
     Dosage: 4 CYCLES
     Route: 065
  2. DOXORUBICIN [Suspect]
     Active Substance: DOXORUBICIN
     Indication: HER-2 POSITIVE BREAST CANCER
     Dosage: 4 CYCLES
     Route: 042
  3. RADIOTHERAPY [Suspect]
     Active Substance: RADIATION THERAPY
     Indication: HER-2 POSITIVE BREAST CANCER
     Route: 065
  4. PACLITAXEL. [Suspect]
     Active Substance: PACLITAXEL
     Indication: HER-2 POSITIVE BREAST CANCER
     Dosage: 12 CYCLES
     Route: 065

REACTIONS (1)
  - Cardiac failure congestive [Unknown]
